FAERS Safety Report 5405210-2 (Version None)
Quarter: 2007Q3

REPORT INFORMATION
  Report Type: 
  Country: None (occurrence: None)
  Receive Date: 20070803
  Receipt Date: 20070726
  Transmission Date: 20080115
  Serious: Yes (Hospitalization, Disabling, Other)
  Sender: FDA-Public Use
  Company Number: US-ELI_LILLY_AND_COMPANY-US200610003153

PATIENT
  Age: 87 Year
  Sex: Female

DRUGS (3)
  1. HUMULIN 70/30 [Suspect]
     Dosage: 40 UNK, EACH MORNING
  2. HUMULIN 70/30 [Suspect]
     Dosage: 34 UNK, EACH EVENING
  3. HUMULIN 70/30 [Suspect]

REACTIONS (6)
  - CEREBROVASCULAR ACCIDENT [None]
  - HEMIPARESIS [None]
  - RETINAL HAEMORRHAGE [None]
  - VISUAL ACUITY REDUCED [None]
  - VISUAL DISTURBANCE [None]
  - WALKING AID USER [None]
